FAERS Safety Report 5678278-6 (Version None)
Quarter: 2008Q1

REPORT INFORMATION
  Report Type: 
  Country: None (occurrence: None)
  Receive Date: 20080319
  Receipt Date: 20080310
  Transmission Date: 20080703
  Serious: Yes (Other)
  Sender: FDA-Public Use
  Company Number: 2008AP000633

PATIENT
  Age: 35 Year
  Sex: Female

DRUGS (7)
  1. PAROXETINE HCL [Suspect]
     Indication: POSTPARTUM DEPRESSION
     Dosage: SEE IMAGE
     Route: 048
     Dates: start: 19970421
  2. PAROXETINE HCL [Suspect]
     Indication: POSTPARTUM DEPRESSION
     Dosage: SEE IMAGE
     Route: 048
     Dates: start: 19970421
  3. PAROXETINE HCL [Suspect]
     Indication: POSTPARTUM DEPRESSION
     Dosage: SEE IMAGE
     Route: 048
     Dates: start: 20030724
  4. PAROXETINE HCL [Suspect]
     Indication: POSTPARTUM DEPRESSION
     Dosage: SEE IMAGE
     Route: 048
     Dates: start: 20031028
  5. ESCITALOPRAM OXALATE (ESCITALOPRAM OXALATE) [Concomitant]
  6. LOFEPRAMINE (LOFEPRAMINE) [Concomitant]
  7. FLUOXETINE HCL [Concomitant]

REACTIONS (17)
  - ANXIETY [None]
  - BRUXISM [None]
  - CONDITION AGGRAVATED [None]
  - CRYING [None]
  - DEPRESSED MOOD [None]
  - DEPRESSION [None]
  - DISORIENTATION [None]
  - DIZZINESS [None]
  - FATIGUE [None]
  - HEADACHE [None]
  - IRRITABILITY [None]
  - LOSS OF LIBIDO [None]
  - PAIN IN EXTREMITY [None]
  - SUICIDAL IDEATION [None]
  - TINNITUS [None]
  - WEIGHT INCREASED [None]
  - WITHDRAWAL SYNDROME [None]
